FAERS Safety Report 7557674-6 (Version None)
Quarter: 2011Q2

REPORT INFORMATION
  Report Type: 
  Country: None (occurrence: None)
  Receive Date: 20110620
  Receipt Date: 20110610
  Transmission Date: 20111010
  Serious: Yes (Other)
  Sender: FDA-Public Use
  Company Number: US-JNJFOC-20090501667

PATIENT
  Sex: Female
  Weight: 3.31 kg

DRUGS (3)
  1. LAMICTAL [Suspect]
     Route: 064
     Dates: start: 20080814, end: 20081216
  2. TOPIRAMATE [Suspect]
     Indication: DRUG EXPOSURE DURING PREGNANCY
     Route: 064
  3. LAMICTAL [Suspect]
     Indication: DRUG EXPOSURE DURING PREGNANCY
     Route: 064
     Dates: end: 20080814

REACTIONS (2)
  - MATERNAL DRUGS AFFECTING FOETUS [None]
  - INGUINAL HERNIA [None]
